FAERS Safety Report 16116225 (Version 1)
Quarter: 2019Q1

REPORT INFORMATION
  Report Type: Report from Study
  Country: US (occurrence: US)
  Receive Date: 20190326
  Receipt Date: 20190326
  Transmission Date: 20190418
  Serious: No
  Sender: FDA-Public Use
  Company Number: US-IPSEN BIOPHARMACEUTICALS, INC.-2019-04221

PATIENT
  Sex: Female

DRUGS (1)
  1. LANREOTIDE [Suspect]
     Active Substance: LANREOTIDE
     Indication: CARCINOID TUMOUR
     Dosage: NOT REPORTED
     Route: 058
     Dates: start: 201803, end: 201806

REACTIONS (1)
  - Diarrhoea [Recovered/Resolved]

NARRATIVE: CASE EVENT DATE: 2018
